FAERS Safety Report 9733344 (Version 1)
Quarter: 2013Q4

REPORT INFORMATION
  Report Type: Spontaneous
  Country: US (occurrence: US)
  Receive Date: 20131205
  Receipt Date: 20131205
  Transmission Date: 20140711
  Serious: Yes (Other)
  Sender: FDA-Public Use
  Company Number: US-PFIZER INC-2013345984

PATIENT
  Age: 44 Year
  Sex: Male

DRUGS (3)
  1. ADVIL [Suspect]
     Dosage: UNK
  2. NAPROXEN SODIUM [Suspect]
     Dosage: UNK
  3. ACETYLSALICYLIC ACID [Suspect]
     Dosage: UNK

REACTIONS (4)
  - Gastric haemorrhage [Unknown]
  - Haemorrhage [Unknown]
  - Constipation [Unknown]
  - Abdominal pain upper [Unknown]
